FAERS Safety Report 20592967 (Version 1)
Quarter: 2022Q1

REPORT INFORMATION
  Report Type: Spontaneous
  Country: US (occurrence: US)
  Receive Date: 20220315
  Receipt Date: 20220315
  Transmission Date: 20220423
  Serious: No
  Sender: FDA-Public Use
  Company Number: US-AMGEN-USASP2022038629

PATIENT
  Age: 41 Year
  Sex: Male

DRUGS (1)
  1. SENSIPAR [Suspect]
     Active Substance: CINACALCET HYDROCHLORIDE
     Indication: Chronic kidney disease
     Dosage: 60 MILLIGRAM, QD
     Route: 065
     Dates: start: 20140616

REACTIONS (1)
  - Intentional product misuse [Unknown]
